FAERS Safety Report 5581344-7 (Version None)
Quarter: 2008Q1

REPORT INFORMATION
  Report Type: 
  Country: None (occurrence: None)
  Receive Date: 20080104
  Receipt Date: 20071231
  Transmission Date: 20080703
  Serious: Yes (Death)
  Sender: FDA-Public Use
  Company Number: PHBS2007TW21383

PATIENT

DRUGS (2)
  1. DIOVAN HCT [Suspect]
     Dosage: VALS 80 / HCT 12.5 MG/DAY
     Route: 048
  2. DIOVAN [Suspect]
     Dosage: 160 MG/DAY

REACTIONS (1)
  - DEATH [None]
